FAERS Safety Report 7259075-7 (Version None)
Quarter: 2011Q1

REPORT INFORMATION
  Report Type: 
  Country: None (occurrence: None)
  Receive Date: 20110129
  Receipt Date: 20100811
  Transmission Date: 20110831
  Serious: No
  Sender: FDA-Public Use
  Company Number: US-ABBOTT-10P-163-0663504-00

PATIENT
  Sex: Female

DRUGS (1)
  1. HUMIRA [Suspect]

REACTIONS (2)
  - ACCIDENTAL EXPOSURE [None]
  - DEVICE MALFUNCTION [None]
